FAERS Safety Report 13951638 (Version 5)
Quarter: 2018Q1

REPORT INFORMATION
  Report Type: Spontaneous
  Country: GB (occurrence: GB)
  Receive Date: 20170908
  Receipt Date: 20180119
  Transmission Date: 20180508
  Serious: Yes (Other)
  Sender: FDA-Public Use
  Company Number: GB-ASTRAZENECA-2017SE31787

PATIENT
  Age: 20 Year
  Sex: Female

DRUGS (33)
  1. IRON [Concomitant]
     Active Substance: IRON
  2. AVEENO [Concomitant]
     Active Substance: DIMETHICONE\HOMOSALATE\OCTINOXATE\OCTISALATE\TITANIUM DIOXIDE
     Dosage: APPLIED AS OFTEN AS NECESSARY
  3. CREON [Concomitant]
     Active Substance: PANCRELIPASE AMYLASE\PANCRELIPASE LIPASE\PANCRELIPASE PROTEASE
     Dosage: 25000 GASTRO-RESISTANT CAPSULES
  4. HUMALOG [Concomitant]
     Active Substance: INSULIN LISPRO
     Dosage: KWIKPEN 1 OOUNITS/ML SOLUTION FOR INJECTION 1OM I VIALS, 3ML PRE-FILLED PEN
  5. LEVEMIR [Concomitant]
     Active Substance: INSULIN DETEMIR
     Indication: THYROID DISORDER
     Dosage: ONE EVERY DAY
  6. PRAVASTATIN. [Concomitant]
     Active Substance: PRAVASTATIN
     Dosage: ONE TO BE TAKEN AT NIGHT- DAILY DOSE 30MG
  7. GLUCAGEN [Concomitant]
     Active Substance: GLUCAGON HYDROCHLORIDE
     Dosage: 1 MG POWDER AND SOLVENT FOR SOLUTION FOR INJECTION
  8. LEVEMIR [Concomitant]
     Active Substance: INSULIN DETEMIR
     Indication: THYROID DISORDER
     Dosage: ONE EVERY DAY
  9. BISOPROLOL [Concomitant]
     Active Substance: BISOPROLOL
     Indication: HEART RATE ABNORMAL
  10. DULOXETINE. [Concomitant]
     Active Substance: DULOXETINE
     Dosage: 30MG GASTRO-RESISTANT CAPSULES, 2 ONCE DAILY
  11. HUMALOG [Concomitant]
     Active Substance: INSULIN LISPRO
     Dosage: 1 OOUNITS/ML SOLUTION FOR INJECTION 1OM I VIALS
  12. VENTOLIN [Concomitant]
     Active Substance: ALBUTEROL SULFATE
     Indication: ASTHMA
     Dosage: TWO PUFFS UP TO FOUR TIMES A DAY
  13. DILTIAZEM. [Concomitant]
     Active Substance: DILTIAZEM
     Dosage: 56 CAPSULE ONE TO BE TAKEN EACH DAY
     Route: 048
  14. ALVERINE [Concomitant]
     Active Substance: ALVERINE
     Indication: ABDOMINAL PAIN
  15. ASCORBIC ACID. [Concomitant]
     Active Substance: ASCORBIC ACID
  16. LEVEMIR [Concomitant]
     Active Substance: INSULIN DETEMIR
     Indication: THYROID DISORDER
     Dosage: FLEXPEN 1 OOUNITS/ML SOLUTION FOR INJECTION 3ML PRE-FILLED PEN
  17. PANTOPRAZOLE [Concomitant]
     Active Substance: PANTOPRAZOLE
     Dosage: 20MG GASTRO-RESISTANT TABLETS 2 DAILY
  18. ALVERINE [Concomitant]
     Active Substance: ALVERINE
     Indication: ABDOMINAL DISTENSION
  19. PARACETAMOL [Concomitant]
     Active Substance: ACETAMINOPHEN
     Dosage: TWO TO BE TAKEN 224 TABLET
  20. LOSEC [Suspect]
     Active Substance: OMEPRAZOLE
     Indication: CONGENITAL OESOPHAGEAL ANOMALY
     Dosage: GENERIC, 20 MG FOUR TIMES A DAY
     Route: 048
     Dates: start: 2013, end: 2014
  21. CODEINE [Concomitant]
     Active Substance: CODEINE
     Dosage: 1-2 FOUR TIMES A  DAY WHENREQUIRED
  22. INSULIN [Concomitant]
     Active Substance: INSULIN NOS
  23. LEVOTHYROXINE. [Concomitant]
     Active Substance: LEVOTHYROXINE
     Dosage: 175.0MG UNKNOWN
  24. VITAMIN D [Concomitant]
     Active Substance: CHOLECALCIFEROL
  25. IRBESARTAN. [Concomitant]
     Active Substance: IRBESARTAN
     Indication: BLOOD PRESSURE ABNORMAL
  26. CLENIL MODULITE [Concomitant]
     Active Substance: BECLOMETHASONE DIPROPIONATE
     Indication: ASTHMA
  27. COLECALCIFEROL [Concomitant]
     Active Substance: CHOLECALCIFEROL
     Dosage: 800UNIT 1 DAILY
  28. LOSEC [Suspect]
     Active Substance: OMEPRAZOLE
     Indication: CONGENITAL OESOPHAGEAL ANOMALY
     Route: 048
     Dates: start: 1990, end: 2013
  29. BISOPROLOL [Concomitant]
     Active Substance: BISOPROLOL
  30. GLUCAGEN [Concomitant]
     Active Substance: GLUCAGON HYDROCHLORIDE
     Dosage: 1 MG POWDER AND SOLVENT FOR SOLUTION FOR INJECTION
  31. IRBESARTAN. [Concomitant]
     Active Substance: IRBESARTAN
  32. PRAVASTATIN. [Concomitant]
     Active Substance: PRAVASTATIN
     Dosage: ONE TO BE TAKEN AT NIGHT
  33. RANITIDINE. [Concomitant]
     Active Substance: RANITIDINE

REACTIONS (47)
  - Diabetic neuropathy [Unknown]
  - Neuropathy peripheral [Unknown]
  - Non-cardiac chest pain [Unknown]
  - Oesophageal ulcer [Unknown]
  - Abdominal pain upper [Unknown]
  - Product use issue [Unknown]
  - Ankle fracture [Not Recovered/Not Resolved]
  - Hypothyroidism [Not Recovered/Not Resolved]
  - Dysphagia [Unknown]
  - Oesophageal discomfort [Unknown]
  - Periarthritis [Unknown]
  - Spinal compression fracture [Unknown]
  - Feeling abnormal [Unknown]
  - Cardiac disorder [Unknown]
  - Palpitations [Unknown]
  - Hypertension [Not Recovered/Not Resolved]
  - Micturition urgency [Unknown]
  - Myxoedema [Unknown]
  - Vitamin D deficiency [Unknown]
  - Retinopathy [Unknown]
  - Facial pain [Unknown]
  - Off label use [Unknown]
  - Heart rate increased [Not Recovered/Not Resolved]
  - Cataract [Unknown]
  - Dyspnoea [Unknown]
  - Pain in extremity [Unknown]
  - Anaemia [Unknown]
  - Amnesia [Unknown]
  - Abdominal discomfort [Unknown]
  - Iron deficiency anaemia [Unknown]
  - Oropharyngeal pain [Unknown]
  - Hyperlipidaemia [Unknown]
  - Dizziness [Unknown]
  - Diarrhoea [Unknown]
  - Exposure during pregnancy [Recovered/Resolved]
  - Abortion spontaneous [Unknown]
  - Chest discomfort [Unknown]
  - Ulcer [Unknown]
  - Rib fracture [Not Recovered/Not Resolved]
  - Type 1 diabetes mellitus [Unknown]
  - Bone disorder [Unknown]
  - Gait disturbance [Unknown]
  - Chest pain [Unknown]
  - Asthma [Unknown]
  - Lip pain [Unknown]
  - Oesophageal disorder [Unknown]
  - Drug ineffective [Unknown]

NARRATIVE: CASE EVENT DATE: 1990
